FAERS Safety Report 12959199 (Version 1)
Quarter: 2016Q4

REPORT INFORMATION
  Report Type: Report from Study
  Country: AU (occurrence: AU)
  Receive Date: 20161121
  Receipt Date: 20161121
  Transmission Date: 20170207
  Serious: Yes (Other)
  Sender: FDA-Public Use
  Company Number: AU-CIPLA LTD.-2016GB21263

PATIENT

DRUGS (2)
  1. ANASTROZOLE. [Suspect]
     Active Substance: ANASTROZOLE
     Indication: PROPHYLACTIC CHEMOTHERAPY
     Dosage: 1 MG, PER DAY
     Route: 048
  2. TAMOXIFEN PLACEBO [Suspect]
     Active Substance: TAMOXIFEN
     Indication: PROPHYLACTIC CHEMOTHERAPY
     Dosage: UNK, PER DAY
     Route: 048

REACTIONS (1)
  - Disease recurrence [Unknown]
